FAERS Safety Report 19401256 (Version 1)
Quarter: 2021Q2

REPORT INFORMATION
  Report Type: Spontaneous
  Country: US (occurrence: US)
  Receive Date: 20210611
  Receipt Date: 20210611
  Transmission Date: 20210717
  Serious: No
  Sender: FDA-Public Use
  Company Number: US-LUPIN PHARMACEUTICALS INC.-2021-09106

PATIENT
  Age: 3 Year
  Sex: Male

DRUGS (3)
  1. ALBUTEROL. [Concomitant]
     Active Substance: ALBUTEROL
     Indication: PRODUCTIVE COUGH
     Dosage: UNK
     Route: 065
  2. BUDESONIDE INHALATION SUSPENSION [Suspect]
     Active Substance: BUDESONIDE
     Indication: PRODUCTIVE COUGH
     Dosage: UNK, BID, BUDESONIDE INHALATION SUSPENSION, 0.5 MG/2 ML
     Dates: start: 20210528
  3. BUDESONIDE INHALATION SUSPENSION [Suspect]
     Active Substance: BUDESONIDE
     Dosage: UNK, BID, BUDESONIDE INHALATION SUSPENSION, 0.5 MG/2 ML
     Dates: end: 20210528

REACTIONS (4)
  - Off label use [Unknown]
  - Product dose omission issue [Unknown]
  - Liquid product physical issue [Unknown]
  - Poor quality product administered [Unknown]

NARRATIVE: CASE EVENT DATE: 202105
